FAERS Safety Report 6964925-5 (Version None)
Quarter: 2010Q3

REPORT INFORMATION
  Report Type: 
  Country: None (occurrence: None)
  Receive Date: 20100903
  Receipt Date: 20100826
  Transmission Date: 20110219
  Serious: Yes (Hospitalization, Other)
  Sender: FDA-Public Use
  Company Number: US-ASTRAZENECA-2007UW21661

PATIENT
  Age: 558 Month
  Sex: Female
  Weight: 82.1 kg

DRUGS (16)
  1. SEROQUEL [Suspect]
     Indication: DEPRESSION
     Dosage: 100 MG TO 600 MG
     Route: 048
     Dates: start: 20000601, end: 20050601
  2. SEROQUEL [Suspect]
     Indication: BIPOLAR DISORDER
     Dosage: 100 MG TO 600 MG
     Route: 048
     Dates: start: 20000601, end: 20050601
  3. ROCEPHIN [Concomitant]
  4. KEFLEX [Concomitant]
  5. PERCOCET [Concomitant]
  6. NAPROSYN [Concomitant]
  7. HYDROCHLOROTHIAZIDE [Concomitant]
  8. CYCLOBENZAPRINE [Concomitant]
  9. ACETAZOLAMIDE [Concomitant]
  10. CLARINEX [Concomitant]
  11. DEPAKOTE [Concomitant]
  12. ABILIFY [Concomitant]
     Dates: start: 20060222, end: 20060616
  13. HALDOL [Concomitant]
     Dates: start: 20060922, end: 20070801
  14. BENZTROPINE MESYLATE [Concomitant]
     Route: 048
     Dates: start: 20070622
  15. LISINOPRIL [Concomitant]
     Route: 048
     Dates: start: 20070217
  16. NABUMETONE [Concomitant]
     Route: 048
     Dates: start: 20070515

REACTIONS (19)
  - ANAEMIA [None]
  - BACK PAIN [None]
  - COLONIC POLYP [None]
  - CONVULSION [None]
  - CYST [None]
  - DIABETES MELLITUS [None]
  - DIABETIC COMA [None]
  - DIABETIC COMPLICATION [None]
  - DIABETIC HYPEROSMOLAR COMA [None]
  - DIABETIC KETOACIDOSIS [None]
  - FUNGAL INFECTION [None]
  - HAEMORRHOIDS [None]
  - RECTAL HAEMORRHAGE [None]
  - RENAL FAILURE ACUTE [None]
  - RESPIRATORY DISORDER [None]
  - RESPIRATORY FAILURE [None]
  - TYPE 2 DIABETES MELLITUS [None]
  - URINARY INCONTINENCE [None]
  - VAGINITIS BACTERIAL [None]
